FAERS Safety Report 4943977-8 (Version None)
Quarter: 2006Q1

REPORT INFORMATION
  Report Type: 
  Country: None (occurrence: None)
  Receive Date: 20060315
  Receipt Date: 20060303
  Transmission Date: 20060701
  Serious: Yes (Hospitalization, Other)
  Sender: FDA-Public Use
  Company Number: SE-JNJFOC-20060302562

PATIENT
  Age: 50 Year
  Sex: Female

DRUGS (5)
  1. INFLIXIMAB [Suspect]
     Dosage: 3RD INFUSION
     Route: 042
  2. INFLIXIMAB [Suspect]
     Indication: RHEUMATOID ARTHRITIS
     Dosage: FOLLOWED BY SECOND INFUSION 2 WEEKS LATER
     Route: 042
  3. ETANERCEPT [Suspect]
     Indication: RHEUMATOID ARTHRITIS
  4. METHOTREXATE [Concomitant]
  5. PREDNISOLONE [Concomitant]

REACTIONS (2)
  - PSORIASIS [None]
  - PUSTULAR PSORIASIS [None]
